FAERS Safety Report 6701658-4 (Version None)
Quarter: 2010Q2

REPORT INFORMATION
  Report Type: 
  Country: None (occurrence: None)
  Receive Date: 20100427
  Receipt Date: 20100412
  Transmission Date: 20101027
  Serious: Yes (Death, Hospitalization)
  Sender: FDA-Public Use
  Company Number: 2009AC000435

PATIENT
  Age: 60 Year
  Sex: Female
  Weight: 70.3075 kg

DRUGS (65)
  1. DIGOXIN [Suspect]
     Indication: CARDIAC DISORDER
     Dosage: 0.125 MG; QD; PO
     Route: 048
     Dates: start: 20070701
  2. DIGOXIN [Suspect]
     Dosage: 0.125 MG; QD; PO
     Route: 048
     Dates: start: 20070614, end: 20070801
  3. FLUOXETINE [Concomitant]
  4. LEVAQUIN [Concomitant]
  5. PROTONIX [Concomitant]
  6. SYNTHROID [Concomitant]
  7. PLAVIX [Concomitant]
  8. ASPIRIN [Concomitant]
  9. COZAAR [Concomitant]
  10. LASIX [Concomitant]
  11. POTASSIUM CHLORIDE [Concomitant]
  12. IRON [Concomitant]
  13. ZETIA [Concomitant]
  14. TRICOR [Concomitant]
  15. ALDACTONE [Concomitant]
  16. CLARINEX [Concomitant]
  17. PACERONE [Concomitant]
  18. PROMETHAZINE [Concomitant]
  19. CIPROFLOXACILLIN [Concomitant]
  20. NAPROXEN [Concomitant]
  21. OXYCODONE HCL [Concomitant]
  22. HEPARIN [Concomitant]
  23. SODIUM CHLORIDE [Concomitant]
  24. VANCOMYCIN [Concomitant]
  25. CLEOCIN [Concomitant]
  26. PROZAC [Concomitant]
  27. MYCOSTATIN [Concomitant]
  28. ZITHROMAX [Concomitant]
  29. COMBIVENT [Concomitant]
  30. CRESTOR [Concomitant]
  31. VERSED [Concomitant]
  32. FENTANYL CITRATE [Concomitant]
  33. PHENAZOPYRIDINE HCL TAB [Concomitant]
  34. LISINOPRIL [Concomitant]
  35. CEPHALEXIN [Concomitant]
  36. SELDANE [Concomitant]
  37. TROVAN [Concomitant]
  38. HUMIBID [Concomitant]
  39. PREMARIN [Concomitant]
  40. SPIRONOLACTONE [Concomitant]
  41. PREDNISONE [Concomitant]
  42. ATROPINE [Concomitant]
  43. DOPAMINE HCL [Concomitant]
  44. DIGIBIND [Concomitant]
  45. OXYGEN [Concomitant]
  46. ATIVAN [Concomitant]
  47. VIBRAMYCIN [Concomitant]
  48. TEQUIN [Concomitant]
  49. PHENERGAN [Concomitant]
  50. CODEINE SULFATE [Concomitant]
  51. CLARINEX [Concomitant]
  52. CEFTIN [Concomitant]
  53. CARDIZEM [Concomitant]
  54. MORPHINE [Concomitant]
  55. ISOPROTERENOL HCL [Concomitant]
  56. ZOFRAN [Concomitant]
  57. ALBUMIN (HUMAN) [Concomitant]
  58. FLAGYL [Concomitant]
  59. IMIPENEM [Concomitant]
  60. LEVOPHED [Concomitant]
  61. PITRESSIN [Concomitant]
  62. CALCIUM GLUCONATE [Concomitant]
  63. SODIUM BICARBONATE [Concomitant]
  64. TOPROL-XL [Concomitant]
  65. PHENAZOPYRIDINE HCL TAB [Concomitant]

REACTIONS (83)
  - ABDOMINAL PAIN [None]
  - ACUTE MYOCARDIAL INFARCTION [None]
  - ACUTE PRERENAL FAILURE [None]
  - ANAEMIA [None]
  - ANURIA [None]
  - ANXIETY [None]
  - AORTIC THROMBOSIS [None]
  - AORTIC VALVE INCOMPETENCE [None]
  - ASCITES [None]
  - ASTHENIA [None]
  - ATRIAL FIBRILLATION [None]
  - ATRIAL FLUTTER [None]
  - ATRIOVENTRICULAR BLOCK FIRST DEGREE [None]
  - BACK PAIN [None]
  - BLINDNESS UNILATERAL [None]
  - BLOOD PRESSURE SYSTOLIC DECREASED [None]
  - BRADYCARDIA [None]
  - BRAIN NATRIURETIC PEPTIDE INCREASED [None]
  - CARDIAC FAILURE CONGESTIVE [None]
  - CARDIOMEGALY [None]
  - CAROTID ARTERY STENOSIS [None]
  - CELLULITIS [None]
  - CHEST PAIN [None]
  - CHILLS [None]
  - CONDITION AGGRAVATED [None]
  - CORONARY ARTERY DISEASE [None]
  - COUGH [None]
  - DECREASED APPETITE [None]
  - DEHYDRATION [None]
  - DEPRESSED LEVEL OF CONSCIOUSNESS [None]
  - DEPRESSION [None]
  - DIPLOPIA [None]
  - DISSEMINATED INTRAVASCULAR COAGULATION [None]
  - DIZZINESS [None]
  - DYSARTHRIA [None]
  - DYSPHAGIA [None]
  - DYSPHONIA [None]
  - FAILURE TO THRIVE [None]
  - FATIGUE [None]
  - GASTROOESOPHAGEAL REFLUX DISEASE [None]
  - GENERALISED OEDEMA [None]
  - GLOSSODYNIA [None]
  - HEPATIC ENZYME INCREASED [None]
  - HYPERBILIRUBINAEMIA [None]
  - HYPERLIPIDAEMIA [None]
  - HYPERTENSION [None]
  - HYPOKINESIA [None]
  - HYPOMAGNESAEMIA [None]
  - HYPONATRAEMIA [None]
  - HYPOTENSION [None]
  - HYPOTHYROIDISM [None]
  - HYPOXIA [None]
  - ILIAC ARTERY THROMBOSIS [None]
  - INTESTINAL ISCHAEMIA [None]
  - METABOLIC ACIDOSIS [None]
  - MITRAL VALVE INCOMPETENCE [None]
  - MULTI-ORGAN FAILURE [None]
  - NAUSEA [None]
  - NECK PAIN [None]
  - OESOPHAGEAL STENOSIS [None]
  - OESOPHAGITIS [None]
  - PANCREATITIS [None]
  - PHARYNGITIS [None]
  - PHOTOPHOBIA [None]
  - PLEURAL EFFUSION [None]
  - PNEUMONIA [None]
  - PYREXIA [None]
  - RENAL CYST [None]
  - RENAL FAILURE ACUTE [None]
  - RESPIRATORY DISTRESS [None]
  - RESPIRATORY FAILURE [None]
  - RHINITIS ALLERGIC [None]
  - SEPSIS [None]
  - SEPTIC SHOCK [None]
  - SINUS BRADYCARDIA [None]
  - SINUSITIS [None]
  - SPLENIC ABSCESS [None]
  - STREPTOCOCCAL INFECTION [None]
  - TACHYCARDIA [None]
  - THERAPEUTIC AGENT TOXICITY [None]
  - TORSADE DE POINTES [None]
  - UNRESPONSIVE TO STIMULI [None]
  - VENTRICULAR HYPOKINESIA [None]
